FAERS Safety Report 25639078 (Version 1)
Quarter: 2025Q3

REPORT INFORMATION
  Report Type: Spontaneous
  Country: EU (occurrence: EU)
  Receive Date: 20250804
  Receipt Date: 20250804
  Transmission Date: 20251021
  Serious: Yes (Other)
  Sender: MYLAN
  Company Number: EU-MYLANLABS-2025M1063553

PATIENT
  Age: 82 Year
  Sex: Female

DRUGS (3)
  1. CLOZARIL [Suspect]
     Active Substance: CLOZAPINE
     Indication: Dementia with Lewy bodies
     Dosage: 50 MILLIGRAM, QD
     Dates: start: 20230228
  2. CLOZARIL [Suspect]
     Active Substance: CLOZAPINE
     Indication: Psychotic disorder
  3. MEMANTINE [Concomitant]
     Active Substance: MEMANTINE
     Indication: Cognitive disorder
     Dosage: 20 MILLIGRAM, QD

REACTIONS (2)
  - Thrombocytopenia [Recovered/Resolved]
  - Off label use [Unknown]

NARRATIVE: CASE EVENT DATE: 20230228
